FAERS Safety Report 25194876 (Version 1)
Quarter: 2025Q2

REPORT INFORMATION
  Report Type: Spontaneous
  Country: US (occurrence: US)
  Receive Date: 20250414
  Receipt Date: 20250414
  Transmission Date: 20250717
  Serious: Yes (Hospitalization, Other)
  Sender: ORGANON
  Company Number: US-MLMSERVICE-20250331-PI461673-00139-1

PATIENT
  Age: 39 Year
  Sex: Female

DRUGS (1)
  1. NUVARING [Suspect]
     Active Substance: ETHINYL ESTRADIOL\ETONOGESTREL
     Indication: Contraception
     Route: 067

REACTIONS (3)
  - Cerebral venous sinus thrombosis [Recovered/Resolved]
  - Pulmonary embolism [Recovered/Resolved]
  - Cerebral haemorrhage [Recovered/Resolved]
